FAERS Safety Report 8896482 (Version 1)
Quarter: 2012Q4

REPORT INFORMATION
  Report Type: Spontaneous
  Country: FR (occurrence: None)
  Receive Date: 20121102
  Receipt Date: 20121102
  Transmission Date: 20130627
  Serious: Yes (Other)
  Sender: FDA-Public Use
  Company Number: FK201203200

PATIENT
  Age: 17 Year
  Sex: Female

DRUGS (3)
  1. METHYLPREDNISOLONE [Suspect]
     Indication: CYSTIC FIBROSIS
     Dosage: Unknown , SINGLE DOSE, Intravenous (not otherwise specified)
  2. ITRACONAZOLE [Suspect]
  3. AZITHROMYCIN [Suspect]
     Dosage: Unknown, long term therapy, Unknown

REACTIONS (4)
  - Hypertension [None]
  - Bradycardia [None]
  - Drug interaction [None]
  - Acute respiratory distress syndrome [None]
